FAERS Safety Report 14544604 (Version 1)
Quarter: 2018Q1

REPORT INFORMATION
  Report Type: Spontaneous
  Country: US (occurrence: US)
  Receive Date: 20180217
  Receipt Date: 20180217
  Transmission Date: 20180509
  Serious: Yes (Disabling)
  Sender: FDA-Public Use
  Company Number: US-IPSEN BIOPHARMACEUTICALS, INC.-2018-00309

PATIENT
  Sex: Male
  Weight: 32.7 kg

DRUGS (12)
  1. KEPPRA [Concomitant]
     Active Substance: LEVETIRACETAM
     Indication: SEIZURE
     Dates: start: 20170303
  2. INSULIN [Concomitant]
     Active Substance: INSULIN NOS
  3. DYSPORT [Suspect]
     Active Substance: ABOBOTULINUMTOXINA
     Indication: CEREBRAL PALSY
     Dosage: 1200 UNITS
     Route: 030
     Dates: start: 20171004, end: 20171004
  4. VALIUM [Concomitant]
     Active Substance: DIAZEPAM
     Indication: MUSCLE SPASTICITY
  5. MIRALAX [Concomitant]
     Active Substance: POLYETHYLENE GLYCOL 3350
  6. PREVACID [Concomitant]
     Active Substance: LANSOPRAZOLE
  7. GLYCOLAX [Concomitant]
     Active Substance: POLYETHYLENE GLYCOL 3350
  8. DIASTAT [Concomitant]
     Active Substance: DIAZEPAM
  9. DYSPORT [Suspect]
     Active Substance: ABOBOTULINUMTOXINA
     Indication: CEREBRAL PALSY
     Dosage: 1200 UNITS
     Route: 030
     Dates: start: 20170106, end: 20170106
  10. DYSPORT [Suspect]
     Active Substance: ABOBOTULINUMTOXINA
     Indication: CEREBRAL PALSY
  11. GLUCAGON. [Concomitant]
     Active Substance: GLUCAGON
  12. KEPPRA [Concomitant]
     Active Substance: LEVETIRACETAM
     Indication: EPILEPSY

REACTIONS (2)
  - Dysphagia [Not Recovered/Not Resolved]
  - Overdose [Unknown]

NARRATIVE: CASE EVENT DATE: 2017
